FAERS Safety Report 9294425 (Version 2)
Quarter: 2013Q2

REPORT INFORMATION
  Report Type: Spontaneous
  Country: US (occurrence: US)
  Receive Date: 20130516
  Receipt Date: 20130516
  Transmission Date: 20140414
  Serious: Yes (Other)
  Sender: FDA-Public Use
  Company Number: US-GALDERMA-US-GDP-12414007

PATIENT
  Age: 40 Year
  Sex: Female

DRUGS (3)
  1. ORACEA (DOXYCYCLINE, USP) CAPSULES 40 MG [Suspect]
     Indication: ROSACEA
     Route: 048
     Dates: start: 2010, end: 20120604
  2. METROGEL (METRONIDAZOLE) GEL, 1% [Suspect]
     Indication: ROSACEA
     Dosage: 1%
     Route: 061
     Dates: start: 2010
  3. FINACEA [Suspect]
     Indication: ROSACEA
     Dosage: 15%
     Route: 061
     Dates: start: 2010

REACTIONS (3)
  - Abortion spontaneous [Recovered/Resolved]
  - Exposure during pregnancy [Recovered/Resolved]
  - Pregnancy [None]
